FAERS Safety Report 6257523-2 (Version None)
Quarter: 2009Q3

REPORT INFORMATION
  Report Type: 
  Country: None (occurrence: None)
  Receive Date: 20090706
  Receipt Date: 20090626
  Transmission Date: 20100115
  Serious: Yes (Hospitalization)
  Sender: FDA-Public Use
  Company Number: FR-AVENTIS-200912408FR

PATIENT
  Age: 58 Year
  Sex: Female

DRUGS (13)
  1. CORTANCYL [Suspect]
     Indication: DRUG USE FOR UNKNOWN INDICATION
     Route: 048
     Dates: start: 20090214, end: 20090220
  2. LOVENOX [Suspect]
     Indication: PROPHYLAXIS
     Route: 058
     Dates: start: 20090205, end: 20090216
  3. NOROXIN [Suspect]
     Route: 048
     Dates: start: 20090214, end: 20090219
  4. PANTOPRAZOLE SODIUM [Suspect]
     Indication: PROPHYLAXIS
     Route: 048
     Dates: start: 20090213, end: 20090220
  5. CALCIUM WITH VITAMIN D             /01233101/ [Suspect]
     Indication: PROPHYLAXIS
     Route: 048
     Dates: start: 20090213, end: 20090220
  6. ALDACTONE [Suspect]
     Indication: DRUG USE FOR UNKNOWN INDICATION
     Route: 048
     Dates: start: 20090213, end: 20090220
  7. DIFFU K [Suspect]
     Route: 048
     Dates: start: 20090213, end: 20090220
  8. LASILIX                            /00032601/ [Suspect]
     Route: 048
     Dates: start: 20090205, end: 20090220
  9. PREVISCAN                          /00789001/ [Concomitant]
     Indication: PROPHYLAXIS
     Route: 048
     Dates: start: 20090213, end: 20090220
  10. TRIATEC                            /00885601/ [Concomitant]
     Indication: DRUG USE FOR UNKNOWN INDICATION
     Route: 048
     Dates: start: 20090213
  11. IMOVANE [Concomitant]
     Indication: DRUG USE FOR UNKNOWN INDICATION
     Route: 048
     Dates: start: 20090212, end: 20090220
  12. LEVOTHYROX [Concomitant]
     Indication: DRUG USE FOR UNKNOWN INDICATION
     Route: 048
  13. INEGY [Concomitant]
     Indication: DRUG USE FOR UNKNOWN INDICATION
     Route: 048

REACTIONS (1)
  - PANCREATITIS ACUTE [None]
